FAERS Safety Report 7770094-4 (Version None)
Quarter: 2011Q3

REPORT INFORMATION
  Report Type: 
  Country: None (occurrence: None)
  Receive Date: 20110922
  Receipt Date: 20110913
  Transmission Date: 20111222
  Serious: Yes (Other)
  Sender: FDA-Public Use
  Company Number: GB-TEVA-301257ISR

PATIENT
  Age: 32 Year
  Sex: Male

DRUGS (3)
  1. ETOPOSIDE [Suspect]
     Indication: TERATOMA OF TESTIS
     Route: 042
  2. ETOPOSIDE [Suspect]
     Indication: TERATOMA OF TESTIS
     Route: 048
  3. CARBOPLATIN [Suspect]
     Indication: TERATOMA OF TESTIS

REACTIONS (1)
  - RENAL FAILURE ACUTE [None]
